FAERS Safety Report 24563425 (Version 2)
Quarter: 2024Q4

REPORT INFORMATION
  Report Type: Spontaneous
  Country: FR (occurrence: FR)
  Receive Date: 20241030
  Receipt Date: 20241113
  Transmission Date: 20250115
  Serious: Yes (Hospitalization)
  Sender: CHEPLAPHARM
  Company Number: None

PATIENT
  Age: 4 Year
  Sex: Female
  Weight: 22 kg

DRUGS (4)
  1. CLONAZEPAM [Suspect]
     Active Substance: CLONAZEPAM
     Dosage: ORAL SOLUTION IN DROPS, UNCERTAINTY ABOUT THE DOSE INGESTED. BOTTLE FOUND EMPTY BUT A LOT OF CONT...
     Route: 048
     Dates: start: 20240630, end: 20240630
  2. CARBAMAZEPINE [Concomitant]
     Active Substance: CARBAMAZEPINE
     Indication: Epilepsy
     Route: 048
  3. CARBAMAZEPINE [Concomitant]
     Active Substance: CARBAMAZEPINE
     Indication: Epilepsy
  4. MIDAZOLAM HYDROCHLORIDE [Concomitant]
     Active Substance: MIDAZOLAM HYDROCHLORIDE
     Indication: Epilepsy
     Route: 048

REACTIONS (6)
  - Somnolence [Recovered/Resolved]
  - Hypotonia [Recovered/Resolved]
  - Balance disorder [Recovered/Resolved]
  - Logorrhoea [Recovered/Resolved]
  - Accidental exposure to product by child [Recovered/Resolved]
  - Crying [Recovered/Resolved]

NARRATIVE: CASE EVENT DATE: 20240630
